FAERS Safety Report 24421769 (Version 1)
Quarter: 2024Q4

REPORT INFORMATION
  Report Type: Spontaneous
  Country: CA (occurrence: CA)
  Receive Date: 20241010
  Receipt Date: 20241010
  Transmission Date: 20250115
  Serious: Yes (Hospitalization)
  Sender: CELLTRION
  Company Number: CA-PFIZER INC-202400200955

PATIENT

DRUGS (12)
  1. INFLECTRA [Suspect]
     Active Substance: INFLIXIMAB-DYYB
     Indication: Colitis ulcerative
     Dosage: 600 MG, EVERY 8 WEEKS (EVERY 0, 2, 6 WEEKS, THEN EVERY 8 WEEKS)
     Route: 042
     Dates: start: 20201104, end: 20210209
  2. INFLECTRA [Suspect]
     Active Substance: INFLIXIMAB-DYYB
     Dosage: 600 MG, EVERY 6 WEEKS
     Route: 042
     Dates: start: 20210330
  3. INFLECTRA [Suspect]
     Active Substance: INFLIXIMAB-DYYB
     Dosage: 600 MG, EVERY 6 WEEKS
     Route: 042
     Dates: start: 20240513
  4. INFLECTRA [Suspect]
     Active Substance: INFLIXIMAB-DYYB
     Dosage: 600 MG, EVERY 6 WEEKS
     Route: 042
     Dates: start: 20240624
  5. INFLECTRA [Suspect]
     Active Substance: INFLIXIMAB-DYYB
     Dosage: 600 MG, AFTER 6 WEEKS AND 3 DAYS (EVERY 6 WEEKS)
     Route: 042
     Dates: start: 20240808
  6. INFLECTRA [Suspect]
     Active Substance: INFLIXIMAB-DYYB
     Dosage: 600 MG, AFTER 6 WEEKS AND 3 DAYS (EVERY 6 WEEKS)
     Route: 042
     Dates: start: 20240928
  7. PENTASA [Concomitant]
     Active Substance: MESALAMINE
     Dosage: 4 G, 1X/DAY
     Route: 048
  8. PENTASA ENEMA [Concomitant]
     Dosage: 1 DF, DOSAGE UNKNOWN
     Route: 065
  9. PREDNISONE [Concomitant]
     Active Substance: PREDNISONE
     Dosage: 1 DF
     Route: 065
     Dates: end: 202101
  10. PREDNISONE [Concomitant]
     Active Substance: PREDNISONE
     Dosage: 40 MG
     Route: 065
     Dates: start: 20210401
  11. PREDNISONE [Concomitant]
     Active Substance: PREDNISONE
     Dosage: 20 MG, DAILY (CURRENTLY ON 20 MG DAILY TAPERING)
     Route: 065
  12. MESALAMINE [Concomitant]
     Active Substance: MESALAMINE
     Dosage: 1 G, 1 DOSE IN 2 DAYS
     Route: 065

REACTIONS (1)
  - Condition aggravated [Not Recovered/Not Resolved]

NARRATIVE: CASE EVENT DATE: 20240624
